FAERS Safety Report 4329742-3 (Version None)
Quarter: 2004Q2

REPORT INFORMATION
  Report Type: 
  Country: None (occurrence: None)
  Receive Date: 20040401
  Receipt Date: 20040331
  Transmission Date: 20050107
  Serious: Yes (Life-Threatening, Hospitalization, Disabling, Other)
  Sender: FDA-Public Use
  Company Number: US-GLAXOSMITHKLINE-A0505412A

PATIENT
  Age: 81 Year
  Sex: Female

DRUGS (10)
  1. VALTREX [Suspect]
     Dosage: 500MG PER DAY
     Route: 048
     Dates: start: 20040325, end: 20040327
  2. PROAMATINE [Concomitant]
  3. PRILOSEC [Concomitant]
  4. NEPHROCAPS [Concomitant]
  5. BRONTEX [Concomitant]
  6. DUONEB [Concomitant]
  7. ASPIRIN [Concomitant]
  8. AMIODARONE HCL [Concomitant]
  9. AGGRENOX [Concomitant]
  10. GLIPIZIDE [Concomitant]

REACTIONS (10)
  - AGGRESSION [None]
  - AGITATION [None]
  - COMA [None]
  - CONFUSIONAL STATE [None]
  - DEPRESSED LEVEL OF CONSCIOUSNESS [None]
  - DYSARTHRIA [None]
  - HALLUCINATION [None]
  - LACRIMATION INCREASED [None]
  - LETHARGY [None]
  - TREMOR [None]
